FAERS Safety Report 6966138-X (Version None)
Quarter: 2010Q3

REPORT INFORMATION
  Report Type: 
  Country: None (occurrence: None)
  Receive Date: 20100903
  Receipt Date: 20100826
  Transmission Date: 20110219
  Serious: Yes (Death)
  Sender: FDA-Public Use
  Company Number: PHHY2010DE19219

PATIENT
  Sex: Female
  Weight: 73 kg

DRUGS (6)
  1. ALISKIREN ALI+ [Suspect]
     Indication: HYPERTENSION
     Dosage: UNK
     Dates: start: 20090129
  2. RAMIPRIL [Concomitant]
     Dosage: 1 DF QD
     Dates: start: 20070713
  3. BISOHEXAL [Concomitant]
     Dosage: 10 MG, UNK
     Dates: start: 20080804
  4. SIMVASTATIN [Concomitant]
     Dosage: 20 MG, DAILY
     Dates: start: 20080701
  5. DIURETICS [Concomitant]
  6. PLATELETS [Concomitant]

REACTIONS (1)
  - UTERINE CANCER [None]
